FAERS Safety Report 15893097 (Version 1)
Quarter: 2019Q1

REPORT INFORMATION
  Report Type: Report from Study
  Country: US (occurrence: US)
  Receive Date: 20190130
  Receipt Date: 20190130
  Transmission Date: 20190417
  Serious: No
  Sender: FDA-Public Use
  Company Number: US-EXELIXIS-CABO-18015725

PATIENT
  Sex: Female

DRUGS (3)
  1. CABOMETYX [Suspect]
     Active Substance: CABOZANTINIB S-MALATE
     Dosage: 20 MG QOD ALTERNATING WITH TWO TABLETS (40 MG) QOD
     Route: 048
     Dates: start: 201808
  2. CABOMETYX [Suspect]
     Active Substance: CABOZANTINIB S-MALATE
     Indication: RENAL CANCER
     Dosage: 60 MG, QD
     Route: 048
     Dates: start: 20180724
  3. CABOMETYX [Suspect]
     Active Substance: CABOZANTINIB S-MALATE
     Dosage: 20 MG QOD ALTERNATING WITH TWO TABLETS (40 MG) QOD
     Route: 048
     Dates: start: 20180918

REACTIONS (2)
  - Impaired healing [Recovering/Resolving]
  - Arthropod bite [Unknown]

NARRATIVE: CASE EVENT DATE: 2018
